FAERS Safety Report 17908427 (Version 2)
Quarter: 2020Q2

REPORT INFORMATION
  Report Type: Spontaneous
  Country: AU (occurrence: AU)
  Receive Date: 20200617
  Receipt Date: 20200622
  Transmission Date: 20200714
  Serious: Yes (Life-Threatening)
  Sender: FDA-Public Use
  Company Number: AU-VIFOR (INTERNATIONAL) INC.-VIT-2020-06514

PATIENT
  Age: 57 Year
  Sex: Male
  Weight: 77 kg

DRUGS (3)
  1. MIRCERA [Suspect]
     Active Substance: METHOXY POLYETHYLENE GLYCOL-EPOETIN BETA
     Indication: ANAEMIA
     Route: 042
     Dates: start: 20200602, end: 20200602
  2. RENAGEL [Concomitant]
     Active Substance: SEVELAMER HYDROCHLORIDE
  3. HEPARIN [Concomitant]
     Active Substance: HEPARIN SODIUM
     Indication: DIALYSIS
     Route: 042

REACTIONS (12)
  - Anaphylactic reaction [Recovering/Resolving]
  - Oedema [Unknown]
  - Foaming at mouth [Unknown]
  - Blood pressure abnormal [Unknown]
  - Therapy non-responder [Unknown]
  - Unresponsive to stimuli [Unknown]
  - Dyspnoea [Unknown]
  - Pulse abnormal [Unknown]
  - Ocular hyperaemia [Unknown]
  - Cyanosis [Unknown]
  - Retching [Unknown]
  - Jaw disorder [Unknown]

NARRATIVE: CASE EVENT DATE: 20200602
